FAERS Safety Report 14727193 (Version 8)
Quarter: 2019Q3

REPORT INFORMATION
  Report Type: Spontaneous
  Country: US (occurrence: US)
  Receive Date: 20180406
  Receipt Date: 20190904
  Transmission Date: 20191004
  Serious: Yes (Hospitalization, Other)
  Sender: FDA-Public Use
  Company Number: US-GLAXOSMITHKLINE-US2018GSK058872

PATIENT
  Sex: Female

DRUGS (5)
  1. OMEPRAZOLE. [Suspect]
     Active Substance: OMEPRAZOLE
     Indication: GASTROOESOPHAGEAL REFLUX DISEASE
     Dosage: 20 MG, QD
     Route: 065
  2. ESOMEPRAZOLE. [Suspect]
     Active Substance: ESOMEPRAZOLE MAGNESIUM
     Indication: GASTRITIS
     Dosage: 40 MG, QD
     Route: 065
  3. RANITIDINE HYDROCHLORIDE. [Suspect]
     Active Substance: RANITIDINE HYDROCHLORIDE
     Indication: PRODUCT USED FOR UNKNOWN INDICATION
     Dosage: UNK
     Route: 065
  4. PREVACID [Suspect]
     Active Substance: LANSOPRAZOLE
     Indication: PRODUCT USED FOR UNKNOWN INDICATION
     Dosage: UNK
     Route: 065
  5. PREVACID [Suspect]
     Active Substance: LANSOPRAZOLE
     Indication: PRODUCT USED FOR UNKNOWN INDICATION
     Dosage: UNK
     Route: 065

REACTIONS (15)
  - Renal failure [Unknown]
  - Diabetic nephropathy [Unknown]
  - Nephrolithiasis [Unknown]
  - Kidney enlargement [Unknown]
  - Renal impairment [Unknown]
  - Congenital cystic kidney disease [Unknown]
  - Dysuria [Unknown]
  - Acute kidney injury [Unknown]
  - Polyuria [Unknown]
  - Chronic kidney disease [Unknown]
  - Blood creatinine increased [Unknown]
  - Ultrasound kidney abnormal [Unknown]
  - Nephropathy [Unknown]
  - Renal cyst [Unknown]
  - Micturition urgency [Unknown]
